FAERS Safety Report 6840215-6 (Version None)
Quarter: 2010Q2

REPORT INFORMATION
  Report Type: 
  Country: None (occurrence: None)
  Receive Date: 20100629
  Receipt Date: 20100427
  Transmission Date: 20101027
  Serious: No
  Sender: FDA-Public Use
  Company Number: US-WYE-H14855510

PATIENT
  Age: 55 Year
  Sex: Female
  Weight: 69.46 kg

DRUGS (14)
  1. PRISTIQ [Suspect]
     Indication: DEPRESSION
     Dosage: 50 MG 1X PER 1 DAY ORAL
     Route: 048
     Dates: start: 20100201
  2. TOPAMAX [Concomitant]
  3. FOLIC ACID [Concomitant]
  4. METHOTREXATE [Concomitant]
  5. VITAMIN D [Concomitant]
  6. CALCIUM (CALCIUM) [Concomitant]
  7. ASCORBIC ACID [Concomitant]
  8. FISH OIL, HYDOGENATED (FISH OIL, HYDROGENATED) [Concomitant]
  9. GLUCOSAMINE (GLUCOSAMINE) [Concomitant]
  10. CHONDROINTIN A (CHONDROITIN SULFATE SODIUM) [Concomitant]
  11. ACISOPHILUS ^ZYMA^ (LACTOBACILLUS ACIDOPHILUS) [Concomitant]
  12. ASPIRIN [Concomitant]
  13. MAGNESIUM (MAGNESIUM) [Concomitant]
  14. ZINC (ZINC) [Concomitant]

REACTIONS (5)
  - CONDITION AGGRAVATED [None]
  - GINGIVAL BLEEDING [None]
  - ONYCHOCLASIS [None]
  - OSTEOARTHRITIS [None]
  - RHEUMATOID ARTHRITIS [None]
